FAERS Safety Report 13133975 (Version 1)
Quarter: 2017Q1

REPORT INFORMATION
  Report Type: Spontaneous
  Country: NL (occurrence: NL)
  Receive Date: 20170120
  Receipt Date: 20170120
  Transmission Date: 20170428
  Serious: Yes (Other)
  Sender: FDA-Public Use
  Company Number: NL-SAOL THERAPEUTICS-2016SAO01139

PATIENT
  Sex: Male

DRUGS (1)
  1. COMPOUNDED BACLOFEN [Suspect]
     Active Substance: BACLOFEN
     Dosage: 320 ?G, \DAY
     Route: 037
     Dates: start: 20151112

REACTIONS (3)
  - Muscle spasticity [Recovered/Resolved]
  - Dystonia [Recovered/Resolved]
  - Therapeutic response decreased [Recovered/Resolved]
